FAERS Safety Report 8908284 (Version 6)
Quarter: 2014Q2

REPORT INFORMATION
  Report Type: Spontaneous
  Country: US (occurrence: US)
  Receive Date: 20121114
  Receipt Date: 20140523
  Transmission Date: 20141212
  Serious: Yes (Disabling, Other)
  Sender: FDA-Public Use
  Company Number: US-MERCK-1211USA004421

PATIENT
  Sex: Male
  Weight: 73.47 kg

DRUGS (2)
  1. PROPECIA [Suspect]
     Indication: ANDROGENETIC ALOPECIA
     Dosage: 5 MG, UNK
     Route: 048
     Dates: end: 200705
  2. PROPECIA [Suspect]
     Dosage: 1 MG, QD
     Route: 048
     Dates: start: 19980805

REACTIONS (11)
  - Anxiety [Not Recovered/Not Resolved]
  - Surgery [Unknown]
  - Sexual dysfunction [Not Recovered/Not Resolved]
  - Road traffic accident [Unknown]
  - Hair transplant [Unknown]
  - Blood cholesterol increased [Unknown]
  - Hyperlipidaemia [Not Recovered/Not Resolved]
  - Weight increased [Unknown]
  - Weight decreased [Unknown]
  - Erectile dysfunction [Unknown]
  - Loss of libido [Unknown]
